FAERS Safety Report 26204205 (Version 1)
Quarter: 2025Q4

REPORT INFORMATION
  Report Type: Spontaneous
  Country: CN (occurrence: CN)
  Receive Date: 20251226
  Receipt Date: 20251226
  Transmission Date: 20260117
  Serious: Yes (Hospitalization)
  Sender: BRISTOL-MYERS SQUIBB COMPANY
  Company Number: CN-BRISTOL-MYERS SQUIBB COMPANY-2025-172988

PATIENT
  Age: 43 Year
  Sex: Female
  Weight: 42 kg

DRUGS (6)
  1. OPDIVO [Suspect]
     Active Substance: NIVOLUMAB
     Indication: Gastric cancer
     Dosage: DRUG USE-TIMES: 1; DRUG USE-DAYS: 1
     Route: 041
     Dates: start: 20251123, end: 20251123
  2. OPDIVO [Suspect]
     Active Substance: NIVOLUMAB
     Dosage: DRUG USE-TIMES: 1; DRUG USE-DAYS: 1
     Route: 041
     Dates: start: 20251123, end: 20251123
  3. CAPECITABINE [Suspect]
     Active Substance: CAPECITABINE
     Indication: Gastric cancer
     Route: 048
     Dates: start: 20251125, end: 20251208
  4. ELOXATIN [Suspect]
     Active Substance: OXALIPLATIN
     Indication: Gastric cancer
     Dosage: DRUG USE-TIMES: 1; DRUG USE-DAYS: 1
     Route: 041
     Dates: start: 20251123, end: 20251123
  5. DEXTROSE [Concomitant]
     Active Substance: DEXTROSE MONOHYDRATE
     Indication: Product used for unknown indication
     Dosage: DRUG USE-TIMES: 1; DRUG USE-DAYS: 1
     Route: 041
     Dates: start: 20251123, end: 20251123
  6. SODIUM CHLORIDE [Concomitant]
     Active Substance: SODIUM CHLORIDE
     Indication: Product used for unknown indication
     Dosage: DRUG USE-TIMES: 1; DRUG USE-DAYS: 1
     Route: 041
     Dates: start: 20251123, end: 20251123

REACTIONS (2)
  - White blood cell count decreased [Recovering/Resolving]
  - Neutrophil count decreased [Recovering/Resolving]

NARRATIVE: CASE EVENT DATE: 20251217
